FAERS Safety Report 6665855-9 (Version None)
Quarter: 2010Q2

REPORT INFORMATION
  Report Type: 
  Country: None (occurrence: None)
  Receive Date: 20100402
  Receipt Date: 20100324
  Transmission Date: 20101027
  Serious: Yes (Hospitalization)
  Sender: FDA-Public Use
  Company Number: JP-PFIZER INC-2010018829

PATIENT
  Age: 88 Year
  Sex: Male
  Weight: 49 kg

DRUGS (6)
  1. LIPITOR [Suspect]
     Indication: DYSLIPIDAEMIA
     Dosage: 10 MG, 1X/DAY
     Route: 048
     Dates: start: 20091111, end: 20100131
  2. LENDORMIN [Concomitant]
     Dosage: UNK
     Dates: start: 20091111
  3. BERIZYM [Concomitant]
     Dosage: UNK
     Dates: start: 20091111
  4. MOHRUS [Concomitant]
     Dosage: UNK
     Dates: start: 20070425
  5. GASMOTIN [Concomitant]
     Dosage: UNK
     Dates: start: 20091111
  6. FAMOTIDINE [Concomitant]
     Dosage: 10 MG, UNK
     Dates: start: 20091111

REACTIONS (1)
  - RHABDOMYOLYSIS [None]
